FAERS Safety Report 14290135 (Version 1)
Quarter: 2017Q4

REPORT INFORMATION
  Report Type: Spontaneous
  Country: US (occurrence: None)
  Receive Date: 20171215
  Receipt Date: 20171215
  Transmission Date: 20180321
  Serious: Yes (Death)
  Sender: FDA-Public Use
  Company Number: None

PATIENT
  Age: 66 Year
  Sex: Female
  Weight: 78 kg

DRUGS (12)
  1. NATURALYTE ACID [Concomitant]
  2. CALCIUM [Concomitant]
     Active Substance: CALCIUM
  3. BAXTER [Concomitant]
  4. HEPARIN SODIUM. [Concomitant]
     Active Substance: HEPARIN SODIUM
  5. IRON SUCROSE [Concomitant]
     Active Substance: IRON SUCROSE
  6. POTASSIUM [Concomitant]
     Active Substance: POTASSIUM
  7. VANCOMYCIN 500 MG SDV MYLAN [Suspect]
     Active Substance: VANCOMYCIN
  8. NORMAL SALINE [Concomitant]
     Active Substance: SODIUM CHLORIDE
  9. VANCOMYCIN 1 GRAM [Suspect]
     Active Substance: VANCOMYCIN
     Indication: INCISIONAL DRAINAGE
     Route: 042
     Dates: start: 20171127, end: 20171127
  10. BICARBONATE [Concomitant]
     Active Substance: BICARBONATE ION
  11. DOXERCALCIFEROL. [Concomitant]
     Active Substance: DOXERCALCIFEROL
  12. HEMODIALYSIS CENTRAL VENOUS TUNNELED CATHETER [Concomitant]

REACTIONS (7)
  - Malaise [None]
  - Foaming at mouth [None]
  - Pain [None]
  - Infusion related reaction [None]
  - Vomiting [None]
  - Respiratory arrest [None]
  - Blood pressure decreased [None]

NARRATIVE: CASE EVENT DATE: 20171127
